FAERS Safety Report 10274875 (Version 1)
Quarter: 2014Q3

REPORT INFORMATION
  Report Type: Spontaneous
  Country: US (occurrence: US)
  Receive Date: 20140702
  Receipt Date: 20140702
  Transmission Date: 20150326
  Serious: Yes (Other)
  Sender: FDA-Public Use
  Company Number: US-AMGEN INC.-USASP2014049100

PATIENT
  Age: 56 Year
  Sex: Female

DRUGS (3)
  1. HUMIRA [Suspect]
     Active Substance: ADALIMUMAB
     Indication: PRODUCT USED FOR UNKNOWN INDICATION
     Dosage: UNK
     Route: 065
  2. CIMZIA [Suspect]
     Active Substance: CERTOLIZUMAB PEGOL
     Indication: PRODUCT USED FOR UNKNOWN INDICATION
     Dosage: UNK
     Route: 065
  3. ENBREL [Suspect]
     Active Substance: ETANERCEPT
     Indication: PSORIATIC ARTHROPATHY
     Dosage: UNK
     Route: 065
     Dates: start: 2002, end: 2008

REACTIONS (14)
  - Crohn^s disease [Recovered/Resolved]
  - Neck pain [Not Recovered/Not Resolved]
  - Influenza [Recovered/Resolved]
  - Local swelling [Not Recovered/Not Resolved]
  - Ill-defined disorder [Not Recovered/Not Resolved]
  - Headache [Recovered/Resolved]
  - Adverse event [Recovered/Resolved]
  - Bone pain [Not Recovered/Not Resolved]
  - Inflammatory bowel disease [Recovered/Resolved]
  - Malaise [Recovered/Resolved]
  - Finger deformity [Not Recovered/Not Resolved]
  - Bone swelling [Not Recovered/Not Resolved]
  - Weight decreased [Recovered/Resolved]
  - Nausea [Recovered/Resolved]
